FAERS Safety Report 13437030 (Version 1)
Quarter: 2017Q2

REPORT INFORMATION
  Report Type: Spontaneous
  Country: US (occurrence: US)
  Receive Date: 20170413
  Receipt Date: 20170413
  Transmission Date: 20170830
  Serious: No
  Sender: FDA-Public Use
  Company Number: US-SA-2016SA070375

PATIENT
  Age: 53 Year
  Sex: Male

DRUGS (1)
  1. ALLEGRA-D [Suspect]
     Active Substance: FEXOFENADINE\PSEUDOEPHEDRINE
     Indication: MULTIPLE ALLERGIES
     Dosage: DOSE: 60/120 MG
     Route: 048

REACTIONS (3)
  - Pollakiuria [Unknown]
  - Night sweats [Unknown]
  - Insomnia [Unknown]
